FAERS Safety Report 6551203-1 (Version None)
Quarter: 2010Q1

REPORT INFORMATION
  Report Type: 
  Country: None (occurrence: None)
  Receive Date: 20100121
  Receipt Date: 20100114
  Transmission Date: 20100710
  Serious: Yes (Life-Threatening, Hospitalization, Other)
  Sender: FDA-Public Use
  Company Number: 2009SP043165

PATIENT
  Age: 58 Year
  Sex: Female

DRUGS (8)
  1. REMERON [Suspect]
     Indication: DEPRESSION
     Dosage: 15 MG; QD; PO, 30 MG; QD; PO, 45 MG; QD; PO
     Route: 048
     Dates: start: 20091022
  2. REMERON [Suspect]
     Indication: DEPRESSION
     Dosage: 15 MG; QD; PO, 30 MG; QD; PO, 45 MG; QD; PO
     Route: 048
     Dates: start: 20091111
  3. REMERON [Suspect]
     Indication: DEPRESSION
     Dosage: 15 MG; QD; PO, 30 MG; QD; PO, 45 MG; QD; PO
     Route: 048
     Dates: start: 20091202
  4. PURSENNID (PURSENNID / 01627401/) [Suspect]
     Indication: CONSTIPATION
     Dosage: 24 MG; ; PO
     Route: 048
     Dates: start: 20091208, end: 20091223
  5. SERTRALINE HCL [Concomitant]
  6. VITAMEDIN [Concomitant]
  7. SEROQUEL [Concomitant]
  8. MAGMIT [Concomitant]

REACTIONS (11)
  - ABDOMINAL DISCOMFORT [None]
  - CEREBRAL ATROPHY [None]
  - CONSTIPATION [None]
  - DELUSION [None]
  - ENDOCRINE DISORDER [None]
  - HYPOCHONDRIASIS [None]
  - HYPOKALAEMIA [None]
  - HYPOPHAGIA [None]
  - MALNUTRITION [None]
  - NORMOCHROMIC NORMOCYTIC ANAEMIA [None]
  - UPPER GASTROINTESTINAL HAEMORRHAGE [None]
